FAERS Safety Report 8901064 (Version 1)
Quarter: 2012Q4

REPORT INFORMATION
  Report Type: Report from Study
  Country: SE (occurrence: SE)
  Receive Date: 20121109
  Receipt Date: 20121109
  Transmission Date: 20130627
  Serious: Yes (Hospitalization)
  Sender: FDA-Public Use
  Company Number: SE-ABBOTT-12P-150-1003458-00

PATIENT
  Age: 61 None
  Sex: Female

DRUGS (17)
  1. ZEMPLAR [Suspect]
     Indication: RENAL FAILURE CHRONIC
     Dates: start: 20110927
  2. PREDNISOLONE [Concomitant]
     Indication: PRODUCT USED FOR UNKNOWN INDICATION
  3. ADVAGRAF [Concomitant]
     Indication: PRODUCT USED FOR UNKNOWN INDICATION
  4. LEVAXIN [Concomitant]
     Indication: PRODUCT USED FOR UNKNOWN INDICATION
     Dosage: 175 mcrg 3/week + 100 mcrg 4/week
  5. LEVAXIN [Concomitant]
     Dosage: 175 mcrg 2/week + 200 mcrg 5/week
  6. FURIX [Concomitant]
     Indication: PRODUCT USED FOR UNKNOWN INDICATION
  7. FURIX [Concomitant]
  8. TROMBYL [Concomitant]
     Indication: PRODUCT USED FOR UNKNOWN INDICATION
  9. SELOKEN ZOC/ASA [Concomitant]
     Indication: PRODUCT USED FOR UNKNOWN INDICATION
  10. AMLODIPIN [Concomitant]
     Indication: PRODUCT USED FOR UNKNOWN INDICATION
  11. LOSARTAN [Concomitant]
     Indication: PRODUCT USED FOR UNKNOWN INDICATION
  12. IMDUR [Concomitant]
     Indication: PRODUCT USED FOR UNKNOWN INDICATION
  13. SUSCARD [Concomitant]
     Indication: PRODUCT USED FOR UNKNOWN INDICATION
     Dosage: as needed
  14. NITROLINGUAL SPRAY [Concomitant]
     Indication: PRODUCT USED FOR UNKNOWN INDICATION
     Dosage: as needed
  15. LIPITOR [Concomitant]
     Indication: PRODUCT USED FOR UNKNOWN INDICATION
  16. LEVEMIR [Concomitant]
     Indication: PRODUCT USED FOR UNKNOWN INDICATION
  17. NOVORAPID [Concomitant]
     Indication: PRODUCT USED FOR UNKNOWN INDICATION

REACTIONS (9)
  - Dyspnoea [Recovered/Resolved]
  - Pyrexia [Recovered/Resolved]
  - Pneumonia [Recovered/Resolved]
  - Cardiac failure congestive [Recovered/Resolved]
  - Bronchitis [Unknown]
  - Respiratory tract infection [Unknown]
  - Cough [Recovered/Resolved]
  - Chest pain [Recovered/Resolved]
  - Nasopharyngitis [Unknown]
